FAERS Safety Report 6509386-5 (Version None)
Quarter: 2009Q4

REPORT INFORMATION
  Report Type: 
  Country: None (occurrence: None)
  Receive Date: 20091222
  Receipt Date: 20091217
  Transmission Date: 20100525
  Serious: Yes (Hospitalization)
  Sender: FDA-Public Use
  Company Number: DE-WYE-G05048909

PATIENT
  Sex: Female

DRUGS (2)
  1. TREVILOR RETARD [Suspect]
     Indication: DEPRESSION
     Route: 048
     Dates: start: 20090901, end: 20091201
  2. THYRONAJOD [Concomitant]
     Indication: HYPOTHYROIDISM
     Route: 048
     Dates: start: 20060101

REACTIONS (4)
  - ATRIAL FIBRILLATION [None]
  - CARDIAC FAILURE [None]
  - CARDITIS [None]
  - CONGESTIVE CARDIOMYOPATHY [None]
